FAERS Safety Report 11222657 (Version 1)
Quarter: 2015Q2

REPORT INFORMATION
  Report Type: Spontaneous
  Country: US (occurrence: US)
  Receive Date: 20150626
  Receipt Date: 20150626
  Transmission Date: 20150821
  Serious: Yes (Other)
  Sender: FDA-Public Use
  Company Number: US-CIPLA LTD.-2015US05131

PATIENT

DRUGS (2)
  1. ANASTROZOLE. [Suspect]
     Active Substance: ANASTROZOLE
     Indication: INVASIVE LOBULAR BREAST CARCINOMA
     Dosage: 1 MG, QD
     Route: 048
     Dates: start: 200908
  2. ANASTROZOLE. [Suspect]
     Active Substance: ANASTROZOLE
     Indication: METASTASES TO BONE

REACTIONS (7)
  - Bone disorder [Not Recovered/Not Resolved]
  - Pyrexia [Recovered/Resolved]
  - Carbohydrate antigen 27.29 increased [Unknown]
  - Tooth abscess [Recovered/Resolved]
  - Stomatitis [Recovered/Resolved]
  - Disease progression [Unknown]
  - Hyperhidrosis [Unknown]

NARRATIVE: CASE EVENT DATE: 201109
